FAERS Safety Report 7621719-5 (Version None)
Quarter: 2011Q3

REPORT INFORMATION
  Report Type: 
  Country: None (occurrence: None)
  Receive Date: 20110719
  Receipt Date: 20110712
  Transmission Date: 20111222
  Serious: Yes (Other)
  Sender: FDA-Public Use
  Company Number: US-RB-026603-11

PATIENT
  Age: 69 Year
  Sex: Female

DRUGS (1)
  1. SUBOXONE [Suspect]
     Indication: PRODUCT USED FOR UNKNOWN INDICATION
     Dosage: 4 MG TABLET(UNKNOWN EXACT DOSING DETAILS)
     Route: 065

REACTIONS (2)
  - UNRESPONSIVE TO STIMULI [None]
  - SOMNOLENCE [None]
